FAERS Safety Report 7796976-5 (Version None)
Quarter: 2011Q4

REPORT INFORMATION
  Report Type: 
  Country: None (occurrence: None)
  Receive Date: 20111005
  Receipt Date: 20111005
  Transmission Date: 20120403
  Serious: Yes (Life-Threatening, Other)
  Sender: FDA-Public Use
  Company Number: None

PATIENT
  Sex: Male

DRUGS (3)
  1. MULTAQ [Suspect]
     Indication: ATRIAL FIBRILLATION
     Dosage: 1
     Route: 048
     Dates: start: 20110623, end: 20110624
  2. ASPIRIN [Concomitant]
     Route: 048
  3. CRESTOR [Concomitant]
     Route: 048

REACTIONS (5)
  - INSOMNIA [None]
  - RESPIRATORY RATE INCREASED [None]
  - FATIGUE [None]
  - CARDIAC FAILURE [None]
  - DYSPNOEA [None]
